FAERS Safety Report 4440834-0 (Version None)
Quarter: 2004Q3

REPORT INFORMATION
  Report Type: 
  Country: None (occurrence: None)
  Receive Date: 20040903
  Receipt Date: 20040723
  Transmission Date: 20050211
  Serious: Yes (Hospitalization)
  Sender: FDA-Public Use
  Company Number: JP-GLAXOSMITHKLINE-B0340813A

PATIENT
  Age: 61 Year
  Sex: Male
  Weight: 51 kg

DRUGS (16)
  1. VALTREX [Suspect]
     Indication: HERPES ZOSTER
     Dosage: 500MG TWICE PER DAY
     Route: 048
     Dates: start: 20040720, end: 20040721
  2. HAEMODIALYSIS [Concomitant]
  3. ZYLORIC [Concomitant]
     Indication: HYPERURICAEMIA
     Dosage: 50MG PER DAY
     Route: 048
     Dates: start: 20001001
  4. LASIX [Concomitant]
     Indication: RENAL FAILURE CHRONIC
     Dosage: 120MG PER DAY
     Route: 048
     Dates: start: 20001001
  5. CARDENALIN [Concomitant]
     Indication: HYPERTENSION
     Dosage: 4MG PER DAY
     Route: 048
     Dates: start: 20001001
  6. NORVASC [Concomitant]
     Indication: HYPERTENSION
     Dosage: 10MG PER DAY
     Route: 048
     Dates: start: 20001001
  7. ACECOL [Concomitant]
     Indication: HYPERTENSION
     Dosage: 4MG PER DAY
     Route: 048
     Dates: start: 20001001
  8. ALDOMET [Concomitant]
     Indication: HYPERTENSION
     Dosage: 250MG PER DAY
     Route: 048
     Dates: start: 20010613
  9. TANKARU [Concomitant]
     Indication: HYPERPARATHYROIDISM SECONDARY
     Dosage: 3G PER DAY
     Route: 048
     Dates: start: 20001001
  10. MARZULENE [Concomitant]
     Indication: GASTRITIS
     Dosage: 2.01G PER DAY
     Route: 048
     Dates: start: 20001001
  11. LAC B [Concomitant]
     Indication: ENTEROCOLITIS
     Dosage: 3G PER DAY
     Route: 048
     Dates: start: 20001001
  12. CYANOCOBALAMIN [Concomitant]
     Indication: VITAMIN B12 DEFICIENCY
     Dosage: 1500MCG PER DAY
     Route: 048
     Dates: start: 20001001
  13. JUVELA NICOTINATE [Concomitant]
     Dosage: 300MG PER DAY
     Route: 048
     Dates: start: 20001001
  14. PURSENNID [Concomitant]
     Indication: CONSTIPATION
     Dosage: 36MG PER DAY
     Route: 048
     Dates: start: 20010530
  15. PENLES [Concomitant]
     Dosage: 18MG PER DAY
     Route: 062
     Dates: start: 20001001
  16. HAEMODIALYSIS [Concomitant]
     Dates: start: 20000502

REACTIONS (7)
  - AGGRESSION [None]
  - DELIRIUM [None]
  - DEPRESSED LEVEL OF CONSCIOUSNESS [None]
  - DISORIENTATION [None]
  - ENCEPHALOPATHY [None]
  - HAEMODIALYSIS [None]
  - RESTLESSNESS [None]
